FAERS Safety Report 12744551 (Version 1)
Quarter: 2016Q3

REPORT INFORMATION
  Report Type: Spontaneous
  Country: US (occurrence: US)
  Receive Date: 20160914
  Receipt Date: 20160914
  Transmission Date: 20161109
  Serious: No
  Sender: FDA-Public Use
  Company Number: US-JAZZ-2016-US-009539

PATIENT
  Sex: Female

DRUGS (34)
  1. XYREM [Suspect]
     Active Substance: SODIUM OXYBATE
     Indication: NARCOLEPSY
     Dosage: 2.25 G, BID
     Route: 048
     Dates: start: 201203, end: 201204
  2. PHENERGAN [Concomitant]
     Active Substance: PROMETHAZINE HYDROCHLORIDE
  3. ALBUTEROL SULFATE. [Concomitant]
     Active Substance: ALBUTEROL SULFATE
  4. CHROMIUM PICOLINATE [Concomitant]
     Active Substance: CHROMIUM PICOLINATE
  5. XANAX [Concomitant]
     Active Substance: ALPRAZOLAM
  6. MELATONIN [Concomitant]
     Active Substance: MELATONIN
  7. CALAN [Concomitant]
     Active Substance: VERAPAMIL HYDROCHLORIDE
  8. PROMETHAZINE [Concomitant]
     Active Substance: PROMETHAZINE\PROMETHAZINE HYDROCHLORIDE
  9. MAGNESIUM CITRATE. [Concomitant]
     Active Substance: MAGNESIUM CITRATE
  10. CALCARB [Concomitant]
  11. FOLIC ACID. [Concomitant]
     Active Substance: FOLIC ACID
  12. SELENIUM [Concomitant]
     Active Substance: SELENIUM
  13. ZINC ACETATE [Concomitant]
     Active Substance: ZINC ACETATE
  14. TRAMADOL HCL [Concomitant]
     Active Substance: TRAMADOL HYDROCHLORIDE
  15. NATURE-THROID [Concomitant]
     Active Substance: THYROID, PORCINE
  16. VITAMIN K [Concomitant]
     Active Substance: PHYTONADIONE
  17. VERAPAMIL [Concomitant]
     Active Substance: VERAPAMIL HYDROCHLORIDE
  18. XYREM [Suspect]
     Active Substance: SODIUM OXYBATE
     Dosage: 3 G, BID
     Route: 048
     Dates: start: 201204, end: 201209
  19. XYREM [Suspect]
     Active Substance: SODIUM OXYBATE
     Dosage: 4.5 G, BID
     Route: 048
     Dates: start: 201209
  20. WESTHROID [Concomitant]
     Active Substance: THYROGLOBULIN
  21. DEMEROL [Concomitant]
     Active Substance: MEPERIDINE HYDROCHLORIDE
  22. METHOCARBAMOL. [Concomitant]
     Active Substance: METHOCARBAMOL
  23. MAGNESIUM [Concomitant]
     Active Substance: MAGNESIUM
  24. TRAZODONE HYDROCHLORIDE. [Concomitant]
     Active Substance: TRAZODONE HYDROCHLORIDE
  25. ZINC GLUCONATE [Concomitant]
     Active Substance: ZINC GLUCONATE
  26. MINIVELLE [Concomitant]
     Active Substance: ESTRADIOL
  27. VITAMIN C [Concomitant]
     Active Substance: ASCORBIC ACID
  28. IODINE. [Concomitant]
     Active Substance: IODINE
  29. CALCIUM CITRATE WITH VITAMIN D3 [Concomitant]
  30. SPIRONOLACTONE. [Concomitant]
     Active Substance: SPIRONOLACTONE
  31. VITAMIN D3 [Concomitant]
     Active Substance: CHOLECALCIFEROL
  32. MULTIVITAMIN [Concomitant]
     Active Substance: VITAMINS
  33. ATIVAN [Concomitant]
     Active Substance: LORAZEPAM
  34. KLONOPIN [Concomitant]
     Active Substance: CLONAZEPAM

REACTIONS (2)
  - Nasopharyngitis [Unknown]
  - Migraine [Unknown]

NARRATIVE: CASE EVENT DATE: 2016
